FAERS Safety Report 8477841-7 (Version None)
Quarter: 2012Q2

REPORT INFORMATION
  Report Type: 
  Country: None (occurrence: None)
  Receive Date: 20120629
  Receipt Date: 20120620
  Transmission Date: 20120825
  Serious: Yes (Hospitalization)
  Sender: FDA-Public Use
  Company Number: US-BAYER-2012-039924

PATIENT
  Age: 31 Year
  Sex: Female

DRUGS (14)
  1. FLUCONAZOLE [Concomitant]
     Dosage: 100 MG, UNK
     Dates: start: 20100217
  2. METHYLIN [Concomitant]
     Dosage: 20 MG, QID
     Route: 048
     Dates: start: 20100322
  3. YAZ [Suspect]
     Indication: ACNE
     Dosage: UNK
     Dates: start: 20070801, end: 20080901
  4. METFORMIN HCL [Concomitant]
     Dosage: 500 MG, UNK
     Route: 048
     Dates: start: 20100319
  5. ALPRAZOLAM [Concomitant]
     Dosage: 1 MG, TID
     Dates: start: 20100506
  6. YASMIN [Suspect]
     Indication: POLYCYSTIC OVARIES
     Dosage: UNK
     Dates: start: 20070801, end: 20080901
  7. COLESTIPOL HYDROCHLORIDE [Concomitant]
     Dosage: 1GM TABLET,1 [AND] ? TABLETS HS
     Route: 048
     Dates: start: 20100401
  8. CITALOPRAM HYDROBROMIDE [Concomitant]
     Dosage: 20MG TABLET; EVERY MORNING
     Dates: start: 20100409
  9. AMBIEN [Concomitant]
     Dosage: 10MG TAB (INTERPRETED AS TABLET); TA 1 [AND] ? TABLETS HS (INTERPRETED AS TAKE, HOUR OF SLEEP
     Route: 048
     Dates: start: 20100308
  10. HYDROCODONE BITARTRATE + ACETAMINOPHEN [Concomitant]
     Indication: HEADACHE
     Dosage: 2 TABLETS EVERY 6 HOURS,PRN
     Route: 048
     Dates: start: 20100203
  11. OMEPRAZOLE [Concomitant]
     Dosage: 20 MG, BID
     Route: 048
     Dates: start: 20100519
  12. ACIPHEX [Concomitant]
     Dosage: 20 MG, UNK
     Dates: start: 20100319
  13. DROSPIRENONE AND ETHINYL ESTRADIOL [Suspect]
     Indication: ACNE
     Dosage: UNK
     Dates: start: 20081001, end: 20100501
  14. IBUPROFEN [Concomitant]
     Dosage: 600MG TABLET; 6 HOURLY AS NEEDED
     Route: 048
     Dates: start: 20100503

REACTIONS (4)
  - DEEP VEIN THROMBOSIS [None]
  - INJURY [None]
  - PULMONARY EMBOLISM [None]
  - PAIN [None]
